FAERS Safety Report 5562999-X (Version None)
Quarter: 2007Q4

REPORT INFORMATION
  Report Type: 
  Country: None (occurrence: None)
  Receive Date: 20071217
  Receipt Date: 20071205
  Transmission Date: 20080405
  Serious: Yes (Other)
  Sender: FDA-Public Use
  Company Number: CA-ROCHE-535488

PATIENT
  Age: 48 Year
  Sex: Female

DRUGS (4)
  1. VALIUM [Suspect]
     Indication: DRUG USE FOR UNKNOWN INDICATION
     Dosage: DOSE DURATION REPORTED AS 5 WEEKS
     Route: 065
  2. IMOVANE [Concomitant]
  3. ATIVAN [Concomitant]
  4. CELEXA [Concomitant]

REACTIONS (6)
  - AGITATION [None]
  - DRUG DEPENDENCE [None]
  - INSOMNIA [None]
  - RESPIRATORY RATE DECREASED [None]
  - TREMOR [None]
  - WEIGHT DECREASED [None]
